FAERS Safety Report 6383447-6 (Version None)
Quarter: 2009Q4

REPORT INFORMATION
  Report Type: 
  Country: None (occurrence: None)
  Receive Date: 20091001
  Receipt Date: 20090921
  Transmission Date: 20100525
  Serious: Yes (Hospitalization)
  Sender: FDA-Public Use
  Company Number: CA-JNJFOC-20090906704

PATIENT
  Sex: Female

DRUGS (1)
  1. REMICADE [Suspect]
     Indication: UVEITIS
     Route: 042

REACTIONS (2)
  - ENZYME ABNORMALITY [None]
  - MALAISE [None]
